FAERS Safety Report 15281381 (Version 1)
Quarter: 2018Q3

REPORT INFORMATION
  Report Type: Spontaneous
  Country: FR (occurrence: FR)
  Receive Date: 20180815
  Receipt Date: 20180815
  Transmission Date: 20181010
  Serious: Yes (Other)
  Sender: FDA-Public Use
  Company Number: FR-TEVA-2018-FR-940760

PATIENT
  Age: 26 Year
  Sex: Male
  Weight: 60 kg

DRUGS (1)
  1. PROPRANOLOL TEVA 40 MG, COMPRIM? S?CABLE [Suspect]
     Active Substance: PROPRANOLOL HYDROCHLORIDE
     Indication: THYROID HORMONES INCREASED
     Dosage: 1/2 CP MATIN ET MIDI, 1CP LE SOIR
     Route: 048
     Dates: start: 20170924

REACTIONS (2)
  - Chest discomfort [Not Recovered/Not Resolved]
  - Insomnia [Not Recovered/Not Resolved]

NARRATIVE: CASE EVENT DATE: 201709
